FAERS Safety Report 19017970 (Version 1)
Quarter: 2021Q1

REPORT INFORMATION
  Report Type: Spontaneous
  Country: CA (occurrence: CA)
  Receive Date: 20210316
  Receipt Date: 20210316
  Transmission Date: 20210420
  Serious: Yes (Other)
  Sender: FDA-Public Use
  Company Number: CA-TEVA-2021-CA-1890037

PATIENT
  Age: 54 Year
  Sex: Female

DRUGS (8)
  1. PHENYTOIN. [Suspect]
     Active Substance: PHENYTOIN
     Indication: GENERALISED TONIC-CLONIC SEIZURE
     Dosage: 300 MILLIGRAM DAILY;
     Route: 065
  2. CLONAZEPAM. [Suspect]
     Active Substance: CLONAZEPAM
     Indication: AKATHISIA
     Dosage: 2 MILLIGRAM DAILY;
     Route: 065
  3. QUETIAPINE. [Suspect]
     Active Substance: QUETIAPINE
     Indication: SCHIZOPHRENIA
     Dosage: 900 MILLIGRAM DAILY;
     Route: 048
  4. CLONAZEPAM. [Suspect]
     Active Substance: CLONAZEPAM
     Dosage: 2 MILLIGRAM DAILY;
     Route: 065
  5. SERTRALINE HYDROCHLORIDE. [Suspect]
     Active Substance: SERTRALINE HYDROCHLORIDE
     Indication: DEPRESSION
     Dosage: 150 MILLIGRAM DAILY;
     Route: 065
  6. CLONAZEPAM. [Suspect]
     Active Substance: CLONAZEPAM
     Dosage: .5 MILLIGRAM DAILY;
     Route: 065
  7. CLONAZEPAM. [Suspect]
     Active Substance: CLONAZEPAM
     Indication: SOMNAMBULISM
     Dosage: .5 MILLIGRAM DAILY;
     Route: 065
  8. DIAZEPAM. [Suspect]
     Active Substance: DIAZEPAM
     Indication: AKATHISIA
     Dosage: 10 MILLIGRAM DAILY;
     Route: 065

REACTIONS (1)
  - Dystonia [Recovered/Resolved]
